FAERS Safety Report 6092085-4 (Version None)
Quarter: 2009Q1

REPORT INFORMATION
  Report Type: 
  Country: None (occurrence: None)
  Receive Date: 20090225
  Receipt Date: 20090225
  Transmission Date: 20090719
  Serious: Yes (Hospitalization)
  Sender: FDA-Public Use
  Company Number: FR-PFIZER INC-2009172214

PATIENT

DRUGS (4)
  1. TAHOR [Suspect]
     Indication: HYPERCHOLESTEROLAEMIA
     Dosage: 10 MG, 1X/DAY
     Route: 048
     Dates: start: 20081010, end: 20081114
  2. COAPROVEL [Suspect]
     Indication: HYPERTENSION
     Route: 048
     Dates: start: 20081016, end: 20081114
  3. COLCHIMAX [Suspect]
     Route: 048
     Dates: start: 20081016, end: 20081026
  4. ALLOPURINOL [Suspect]
     Route: 048
     Dates: start: 20081016, end: 20081026

REACTIONS (1)
  - DERMATITIS EXFOLIATIVE [None]
